FAERS Safety Report 16619779 (Version 1)
Quarter: 2019Q3

REPORT INFORMATION
  Report Type: Spontaneous
  Country: DE (occurrence: DE)
  Receive Date: 20190723
  Receipt Date: 20190723
  Transmission Date: 20191004
  Serious: Yes (Hospitalization, Other)
  Sender: FDA-Public Use
  Company Number: DE-ABBVIE-19K-062-2860425-00

PATIENT
  Sex: Female

DRUGS (2)
  1. RITUXIMAB. [Concomitant]
     Active Substance: RITUXIMAB
     Indication: PRODUCT USED FOR UNKNOWN INDICATION
     Dates: start: 201906
  2. VENETOCLAX. [Suspect]
     Active Substance: VENETOCLAX
     Indication: CHRONIC LYMPHOCYTIC LEUKAEMIA
     Route: 048
     Dates: start: 201902

REACTIONS (6)
  - JC polyomavirus test positive [Unknown]
  - Headache [Unknown]
  - Central nervous system lesion [Unknown]
  - Disorientation [Unknown]
  - Progressive multifocal leukoencephalopathy [Unknown]
  - Inflammation [Unknown]

NARRATIVE: CASE EVENT DATE: 2019
